FAERS Safety Report 6051882-1 (Version None)
Quarter: 2009Q1

REPORT INFORMATION
  Report Type: 
  Country: None (occurrence: None)
  Receive Date: 20090126
  Receipt Date: 20090120
  Transmission Date: 20090719
  Serious: Yes (Death)
  Sender: FDA-Public Use
  Company Number: FR-CELGENEUS-056-20785-09011063

PATIENT
  Age: 95 Year
  Sex: Female
  Weight: 58 kg

DRUGS (1)
  1. THALIDOMIDE [Suspect]
     Indication: MULTIPLE MYELOMA
     Route: 048
     Dates: start: 20081120, end: 20081123

REACTIONS (2)
  - METABOLIC DISORDER [None]
  - RENAL FAILURE [None]
